FAERS Safety Report 23485663 (Version 1)
Quarter: 2024Q1

REPORT INFORMATION
  Report Type: Report from Study
  Country: US (occurrence: None)
  Receive Date: 20240206
  Receipt Date: 20240206
  Transmission Date: 20240410
  Serious: Yes (Other)
  Sender: FDA-Public Use
  Company Number: 2024A023579

PATIENT
  Age: 4567 Day
  Sex: Male
  Weight: 53.1 kg

DRUGS (7)
  1. KOSELUGO [Suspect]
     Active Substance: SELUMETINIB
     Indication: Peripheral nervous system neoplasm
     Route: 048
     Dates: start: 20220211
  2. AMOXICILLIN [Concomitant]
     Active Substance: AMOXICILLIN
  3. CLINDAMYCIN [Concomitant]
     Active Substance: CLINDAMYCIN
  4. DOXYCYCLINE [Concomitant]
     Active Substance: DOXYCYCLINE
  5. DRAMAMINE [Concomitant]
     Active Substance: DIMENHYDRINATE
  6. IMODIUM A-D [Concomitant]
     Active Substance: LOPERAMIDE HYDROCHLORIDE
  7. ZYRTEC [Concomitant]
     Active Substance: CETIRIZINE HYDROCHLORIDE

REACTIONS (2)
  - Eyelid disorder [Recovering/Resolving]
  - Rash [Recovering/Resolving]

NARRATIVE: CASE EVENT DATE: 20240126
